FAERS Safety Report 17466292 (Version 8)
Quarter: 2021Q3

REPORT INFORMATION
  Report Type: Report from Study
  Country: HK (occurrence: HK)
  Receive Date: 20200227
  Receipt Date: 20210906
  Transmission Date: 20211014
  Serious: Yes (Death, Life-Threatening, Hospitalization)
  Sender: FDA-Public Use
  Company Number: HK-ROCHE-2558216

PATIENT
  Age: 72 Year
  Sex: Female
  Weight: 63.5 kg

DRUGS (10)
  1. ELANTAN [Concomitant]
     Active Substance: ISOSORBIDE MONONITRATE
     Indication: CORONARY ARTERY DISEASE
     Dates: start: 20181009
  2. METFORMIN [Concomitant]
     Active Substance: METFORMIN HYDROCHLORIDE
     Indication: DIABETES MELLITUS
     Dates: start: 20020920
  3. CLOBETASOL PROPIONATE. [Concomitant]
     Active Substance: CLOBETASOL PROPIONATE
     Indication: PRURITUS
     Dates: start: 20191022
  4. ATEZOLIZUMAB. [Suspect]
     Active Substance: ATEZOLIZUMAB
     Indication: HEPATOCELLULAR CARCINOMA
     Dosage: ON 04/FEB/2020, MOST RECENT DOSE (1200 MG) OF ATEZOLIZUMAB PRIOR TO SAE ONSET WAS GIVEN.
     Route: 041
     Dates: start: 20181204
  5. BEVACIZUMAB. [Suspect]
     Active Substance: BEVACIZUMAB
     Indication: HEPATOCELLULAR CARCINOMA
     Dosage: ON 04/FEB/2020, MOST RECENT DOSE (975 MG) OF BEVACIZUMAB PRIOR TO SAE ONSET WAS GIVEN.
     Route: 042
     Dates: start: 20181204
  6. CANDESARTAN CILEXETIL. [Concomitant]
     Active Substance: CANDESARTAN CILEXETIL
     Indication: HYPERTENSION
     Dates: start: 20190820
  7. METOPROLOL TARTRATE. [Concomitant]
     Active Substance: METOPROLOL TARTRATE
     Indication: HYPERTENSION
     Dates: start: 20020920
  8. HYDRALAZINE HCL [Concomitant]
     Active Substance: HYDRALAZINE HYDROCHLORIDE
     Indication: HYPERTENSION
     Dates: start: 20110104
  9. NORVASC [Concomitant]
     Active Substance: AMLODIPINE BESYLATE
     Indication: HYPERTENSION
     Dates: start: 20100202
  10. HYPROMELLOSE [Concomitant]
     Active Substance: HYPROMELLOSES
     Indication: DRY EYE
     Dates: start: 20180119

REACTIONS (1)
  - Tumour rupture [Recovered/Resolved]

NARRATIVE: CASE EVENT DATE: 20200225
